FAERS Safety Report 6059138-8 (Version None)
Quarter: 2009Q1

REPORT INFORMATION
  Report Type: 
  Country: None (occurrence: None)
  Receive Date: 20090128
  Receipt Date: 20090119
  Transmission Date: 20090719
  Serious: Yes (Death, Hospitalization)
  Sender: FDA-Public Use
  Company Number: 2008US003368

PATIENT
  Age: 59 Year
  Sex: Male

DRUGS (1)
  1. PROGRAF [Suspect]
     Indication: RENAL TRANSPLANT
     Dosage: 0.5 MG, BID, UNK

REACTIONS (53)
  - ACUTE CORONARY SYNDROME [None]
  - ARTERIOSCLEROSIS [None]
  - ARTERIOSCLEROSIS CORONARY ARTERY [None]
  - ATRIAL FIBRILLATION [None]
  - ATRIAL FLUTTER [None]
  - BENIGN PROSTATIC HYPERPLASIA [None]
  - BONE MARROW DISORDER [None]
  - BRONCHOPNEUMONIA [None]
  - BULLOUS LUNG DISEASE [None]
  - CARDIAC HYPERTROPHY [None]
  - CARDIOMEGALY [None]
  - CELL DEATH [None]
  - CHOLELITHIASIS [None]
  - COMPLICATIONS OF TRANSPLANTED KIDNEY [None]
  - CORONARY ARTERY OCCLUSION [None]
  - DELUSION [None]
  - DILATATION VENTRICULAR [None]
  - DIVERTICULUM INTESTINAL [None]
  - ELECTROMECHANICAL DISSOCIATION [None]
  - FIBRIN D DIMER INCREASED [None]
  - GASTRIC DISORDER [None]
  - GLOMERULOSCLEROSIS [None]
  - HAEMOSIDEROSIS [None]
  - HALLUCINATION, AUDITORY [None]
  - HEPATIC CONGESTION [None]
  - HEPATOMEGALY [None]
  - HYDROCELE [None]
  - INFLAMMATION [None]
  - LEUKOCYTOSIS [None]
  - LYMPHADENOPATHY [None]
  - MEDIASTINITIS [None]
  - MYOCARDIAL INFARCTION [None]
  - MYOCARDIAL ISCHAEMIA [None]
  - NEPHRITIS [None]
  - NEPHROSCLEROSIS [None]
  - NERVOUS SYSTEM DISORDER [None]
  - OEDEMA [None]
  - OESOPHAGEAL RUPTURE [None]
  - OESOPHAGEAL ULCER [None]
  - PANCREATIC NECROSIS [None]
  - PLEURISY [None]
  - PORTAL TRIADITIS [None]
  - PULMONARY CONGESTION [None]
  - RENAL FAILURE ACUTE [None]
  - RENAL TUBULAR NECROSIS [None]
  - RESPIRATORY ARREST [None]
  - RESPIRATORY DISORDER [None]
  - RETCHING [None]
  - SCAR [None]
  - SPLEEN CONGESTION [None]
  - VENTRICULAR EXTRASYSTOLES [None]
  - VOMITING [None]
  - XANTHOGRANULOMA [None]
